FAERS Safety Report 8212853-X (Version None)
Quarter: 2012Q1

REPORT INFORMATION
  Report Type: 
  Country: None (occurrence: None)
  Receive Date: 20120315
  Receipt Date: 20120313
  Transmission Date: 20120608
  Serious: Yes (Other)
  Sender: FDA-Public Use
  Company Number: US-BRACCO-007699

PATIENT
  Age: 44 Year
  Sex: Male

DRUGS (2)
  1. ISOVUE-300 [Suspect]
     Indication: PAIN MANAGEMENT
     Route: 008
     Dates: start: 20090301, end: 20090301
  2. ISOVUE-300 [Suspect]
     Indication: EPIDURAL TEST DOSE
     Route: 008
     Dates: start: 20090301, end: 20090301

REACTIONS (7)
  - VOMITING [None]
  - NAUSEA [None]
  - AGGRESSION [None]
  - HEADACHE [None]
  - MEMORY IMPAIRMENT [None]
  - CONVULSION [None]
  - DRUG ADMINISTRATION ERROR [None]
